FAERS Safety Report 7900612-4 (Version None)
Quarter: 2011Q4

REPORT INFORMATION
  Report Type: 
  Country: None (occurrence: None)
  Receive Date: 20111108
  Receipt Date: 20111031
  Transmission Date: 20120403
  Serious: Yes (Other)
  Sender: FDA-Public Use
  Company Number: US-TEVA-300065USA

PATIENT
  Sex: Male

DRUGS (1)
  1. COPAXONE [Suspect]
     Indication: MULTIPLE SCLEROSIS
     Dosage: 20 MILLIGRAM;
     Route: 058
     Dates: start: 20100501, end: 20110901

REACTIONS (6)
  - IMMEDIATE POST-INJECTION REACTION [None]
  - SWELLING FACE [None]
  - CHEST PAIN [None]
  - HYPERHIDROSIS [None]
  - DIZZINESS [None]
  - OEDEMA MOUTH [None]
